FAERS Safety Report 9013581 (Version 1)
Quarter: 2013Q1

REPORT INFORMATION
  Report Type: Spontaneous
  Country: US (occurrence: None)
  Receive Date: 20130107
  Receipt Date: 20130107
  Transmission Date: 20140127
  Serious: Yes (Disabling)
  Sender: FDA-Public Use
  Company Number: None

PATIENT
  Sex: Male
  Weight: 86.18 kg

DRUGS (1)
  1. PROPECIA 1MG MERCK [Suspect]
     Indication: ALOPECIA
     Dosage: 30 ONCE A DAY PO
     Route: 048
     Dates: start: 2005, end: 2012

REACTIONS (5)
  - Erectile dysfunction [None]
  - Mood swings [None]
  - Libido decreased [None]
  - Libido decreased [None]
  - Unevaluable event [None]
